FAERS Safety Report 8879602 (Version 1)
Quarter: 2012Q4

REPORT INFORMATION
  Report Type: 
  Country: US (occurrence: US)
  Receive Date: 20121101
  Receipt Date: 20121101
  Transmission Date: 20130627
  Serious: Yes (Other)
  Sender: FDA-Public Use
  Company Number: US-JNJFOC-20121014374

PATIENT
  Age: 16 Year
  Sex: Male

DRUGS (3)
  1. INFLIXIMAB, RECOMBINANT [Suspect]
     Indication: CROHN^S DISEASE
     Route: 042
  2. 6-MERCAPTOPURINE [Concomitant]
     Indication: CROHN^S DISEASE
     Route: 065
  3. PREDNISONE [Concomitant]
     Indication: CROHN^S DISEASE
     Route: 065

REACTIONS (1)
  - Nocardiosis [Recovered/Resolved]
